FAERS Safety Report 4740445-3 (Version None)
Quarter: 2005Q3

REPORT INFORMATION
  Report Type: 
  Country: None (occurrence: None)
  Receive Date: 20050810
  Receipt Date: 20050802
  Transmission Date: 20060218
  Serious: Yes (Other)
  Sender: FDA-Public Use
  Company Number: GB-BRISTOL-MYERS SQUIBB COMPANY-13059464

PATIENT
  Age: 45 Year
  Sex: Female

DRUGS (4)
  1. PACLITAXEL [Suspect]
  2. CARBOPLATIN [Suspect]
  3. ONDANSETRON [Concomitant]
  4. PARACETAMOL [Concomitant]

REACTIONS (3)
  - ANGIONEUROTIC OEDEMA [None]
  - URINARY TRACT INFECTION [None]
  - URTICARIA [None]
